FAERS Safety Report 6300314-4 (Version None)
Quarter: 2009Q3

REPORT INFORMATION
  Report Type: 
  Country: None (occurrence: None)
  Receive Date: 20090803
  Receipt Date: 20090722
  Transmission Date: 20100115
  Serious: Yes (Hospitalization)
  Sender: FDA-Public Use
  Company Number: GXKR2009RS08358

PATIENT
  Age: 60 Year
  Sex: Female

DRUGS (2)
  1. RIBAVIRIN [Suspect]
     Indication: HEPATITIS C
     Dosage: 1000 MG, QD,
  2. PEGINTERFERON ALFA-2A (PEGINTERFERON ALFA-2A) [Suspect]
     Indication: HEPATITIS C
     Dosage: 180 MG, QW; SUBCUTANEOUS
     Route: 058

REACTIONS (9)
  - ABASIA [None]
  - BURNING SENSATION [None]
  - INFLUENZA LIKE ILLNESS [None]
  - MONONEUROPATHY MULTIPLEX [None]
  - MUSCULAR WEAKNESS [None]
  - PAIN IN EXTREMITY [None]
  - PARAESTHESIA [None]
  - PERONEAL NERVE PALSY [None]
  - SENSORY LOSS [None]
